FAERS Safety Report 25236659 (Version 1)
Quarter: 2025Q2

REPORT INFORMATION
  Report Type: Spontaneous
  Country: CN (occurrence: CN)
  Receive Date: 20250424
  Receipt Date: 20250424
  Transmission Date: 20250717
  Serious: Yes (Other)
  Sender: ASTELLAS
  Company Number: CN-ASTELLAS-2025-AER-021384

PATIENT
  Age: 34 Year
  Sex: Male

DRUGS (1)
  1. PROGRAF [Suspect]
     Active Substance: TACROLIMUS
     Indication: Prophylaxis against graft versus host disease
     Route: 042
     Dates: start: 20250323, end: 20250408

REACTIONS (6)
  - Acute graft versus host disease in intestine [Recovering/Resolving]
  - Renal failure [Unknown]
  - Tremor [Recovering/Resolving]
  - Endothelial dysfunction [Unknown]
  - Immunosuppressant drug level decreased [Unknown]
  - Off label use [Unknown]

NARRATIVE: CASE EVENT DATE: 20250323
